FAERS Safety Report 23270394 (Version 1)
Quarter: 2023Q4

REPORT INFORMATION
  Report Type: Spontaneous
  Country: US (occurrence: US)
  Receive Date: 20231207
  Receipt Date: 20231207
  Transmission Date: 20240110
  Serious: No
  Sender: FDA-Public Use
  Company Number: US-JNJFOC-20231133390

PATIENT
  Age: 49 Year
  Sex: Female

DRUGS (1)
  1. SUDAFED 24 HOUR [Suspect]
     Active Substance: PSEUDOEPHEDRINE HYDROCHLORIDE
     Indication: Sinusitis
     Route: 065

REACTIONS (2)
  - Accidental overdose [Unknown]
  - Product use in unapproved indication [Unknown]
